FAERS Safety Report 13416731 (Version 1)
Quarter: 2017Q2

REPORT INFORMATION
  Report Type: Spontaneous
  Country: US (occurrence: US)
  Receive Date: 20170407
  Receipt Date: 20170407
  Transmission Date: 20170830
  Serious: Yes (Other)
  Sender: FDA-Public Use
  Company Number: US-BAYER-2017-061614

PATIENT
  Age: 27 Year
  Sex: Male
  Weight: 117.91 kg

DRUGS (1)
  1. AFRIN NO DRIP ORIGINAL PUMP MIST [Suspect]
     Active Substance: OXYMETAZOLINE HYDROCHLORIDE
     Dosage: 2 DF, QD
     Route: 045
     Dates: start: 1973

REACTIONS (4)
  - Overdose [None]
  - Pollakiuria [Unknown]
  - Product use issue [Not Recovered/Not Resolved]
  - Drug use disorder [Unknown]

NARRATIVE: CASE EVENT DATE: 1973
